FAERS Safety Report 16628619 (Version 1)
Quarter: 2019Q3

REPORT INFORMATION
  Report Type: Spontaneous
  Country: BE (occurrence: BE)
  Receive Date: 20190725
  Receipt Date: 20190725
  Transmission Date: 20191004
  Serious: Yes (Hospitalization)
  Sender: FDA-Public Use
  Company Number: BE-ACCORD-148573

PATIENT
  Age: 38 Year
  Sex: Female

DRUGS (2)
  1. OXALIPLATIN. [Suspect]
     Active Substance: OXALIPLATIN
     Indication: PRODUCT USED FOR UNKNOWN INDICATION
     Dosage: RECEIVED: 20-FEB-2019, 05-MAR-2019, 27-MAR-2019, 17-APR-2019, 30-APR-2019, 15-MAY-2019, 04-JUN-2019
     Route: 042
  2. FLURACEDYL [Concomitant]
     Active Substance: FLUOROURACIL
     Dosage: 519 + 3891 MG?DATE: 20-FEB-2019, 05-MAR-2019,?27-MAR-2019, 17-APR-2019, 30-APR-2019, 15-MAY-2019
     Route: 042

REACTIONS (6)
  - Hypersensitivity [Recovered/Resolved]
  - Pruritus [Recovered/Resolved]
  - Bronchospasm [Recovered/Resolved]
  - Aphonia [Recovered/Resolved]
  - Oxygen saturation decreased [Recovered/Resolved]
  - Rash [Recovered/Resolved]

NARRATIVE: CASE EVENT DATE: 20190619
